FAERS Safety Report 6927534-X (Version None)
Quarter: 2010Q3

REPORT INFORMATION
  Report Type: 
  Country: None (occurrence: None)
  Receive Date: 20100816
  Receipt Date: 20100816
  Transmission Date: 20110219
  Serious: No
  Sender: FDA-Public Use
  Company Number: None

PATIENT
  Age: 31 Year
  Sex: Female
  Weight: 57.1532 kg

DRUGS (1)
  1. VALACYCLOVIR [Suspect]
     Indication: HERPES SIMPLEX
     Dosage: 500MG QD P.O.
     Route: 048
     Dates: start: 20100101

REACTIONS (2)
  - GENITAL PAIN [None]
  - PRODUCT SUBSTITUTION ISSUE [None]
